FAERS Safety Report 24292185 (Version 1)
Quarter: 2024Q3

REPORT INFORMATION
  Report Type: Spontaneous
  Country: US (occurrence: None)
  Receive Date: 20240906
  Receipt Date: 20240906
  Transmission Date: 20241017
  Serious: No
  Sender: DOMPE FARMACEUTICI
  Company Number: US-FARMAPROD-202307-2086

PATIENT
  Age: 27 Year
  Sex: Male

DRUGS (6)
  1. OXERVATE [Suspect]
     Active Substance: CENEGERMIN-BKBJ
     Indication: Ulcerative keratitis
     Route: 047
     Dates: start: 20230524
  2. OXERVATE [Suspect]
     Active Substance: CENEGERMIN-BKBJ
     Indication: Neurotrophic keratopathy
  3. NOVOLOG [Concomitant]
     Active Substance: INSULIN ASPART
     Dosage: VIAL
  4. TRESIBA [Concomitant]
     Active Substance: INSULIN DEGLUDEC
     Dosage: VIAL
  5. SYSTANE COMPLETE PF [Concomitant]
     Active Substance: PROPYLENE GLYCOL
  6. SYSTANE GEL [Concomitant]
     Dosage: 0.3 %-0.4% DROPS GEL

REACTIONS (1)
  - Illness [Unknown]

NARRATIVE: CASE EVENT DATE: 20230701
